FAERS Safety Report 4429614-X (Version None)
Quarter: 2004Q3

REPORT INFORMATION
  Report Type: 
  Country: None (occurrence: None)
  Receive Date: 20040818
  Receipt Date: 20040806
  Transmission Date: 20050211
  Serious: Yes (Other)
  Sender: FDA-Public Use
  Company Number: 2004054449

PATIENT
  Age: 68 Year
  Sex: Male

DRUGS (2)
  1. CARDURA [Suspect]
     Indication: BENIGN PROSTATIC HYPERPLASIA
     Dosage: 2 MG (2 MG, 1 IN 1 D), ORAL
     Route: 048
     Dates: start: 19990801
  2. NIFEDIPINE [Concomitant]

REACTIONS (2)
  - HYPERTENSION [None]
  - PROSTATIC DISORDER [None]
